FAERS Safety Report 8863044 (Version 2)
Quarter: 2013Q1

REPORT INFORMATION
  Report Type: Report from Study
  Country: NO (occurrence: NO)
  Receive Date: 20121026
  Receipt Date: 20130307
  Transmission Date: 20140127
  Serious: Yes (Death, Life-Threatening, Hospitalization, Disabling)
  Sender: FDA-Public Use
  Company Number: NO-CELGENEUS-122-VELCA-12101124

PATIENT
  Age: 56 Year
  Sex: Male
  Weight: 74.2 kg

DRUGS (7)
  1. VELCADE [Suspect]
     Indication: PLASMA CELL MYELOMA
     Route: 041
     Dates: start: 20100409, end: 20100502
  2. VELCADE [Suspect]
     Route: 041
     Dates: start: 20100503, end: 20100610
  3. DEXAMETHASONE [Suspect]
     Indication: PLASMA CELL MYELOMA
     Route: 048
     Dates: start: 20100409, end: 20100502
  4. DEXAMETHASONE [Suspect]
     Route: 048
     Dates: start: 20100503
  5. DEXAMETHASONE [Suspect]
     Dosage: 5.7143 MILLIGRAM
     Route: 048
     Dates: start: 20100717, end: 20100717
  6. REVLIMID [Suspect]
     Indication: DISEASE PROGRESSION
     Dosage: 15 MILLIGRAM
     Route: 048
     Dates: start: 20100610, end: 20100704
  7. REVLIMID [Suspect]
     Dosage: 15 MILLIGRAM
     Route: 048
     Dates: start: 20100708, end: 20100716

REACTIONS (1)
  - Plasma cell myeloma [Fatal]
